FAERS Safety Report 6156250-X (Version None)
Quarter: 2009Q2

REPORT INFORMATION
  Report Type: 
  Country: None (occurrence: None)
  Receive Date: 20090415
  Receipt Date: 20090406
  Transmission Date: 20091009
  Serious: Yes (Hospitalization)
  Sender: FDA-Public Use
  Company Number: DE-ABBOTT-08P-062-0475833-01

PATIENT
  Sex: Female

DRUGS (2)
  1. HUMIRA [Suspect]
     Indication: CROHN'S DISEASE
     Route: 058
     Dates: start: 20080520, end: 20080826
  2. BUDESONIDE [Concomitant]
     Indication: CROHN'S DISEASE
     Dates: start: 20080819

REACTIONS (1)
  - LARGE INTESTINAL OBSTRUCTION [None]
